FAERS Safety Report 17591127 (Version 9)
Quarter: 2022Q2

REPORT INFORMATION
  Report Type: Spontaneous
  Country: US (occurrence: US)
  Receive Date: 20200327
  Receipt Date: 20220420
  Transmission Date: 20220721
  Serious: No
  Sender: FDA-Public Use
  Company Number: US-PFIZER INC-2020123276

PATIENT
  Age: 51 Year
  Sex: Male
  Weight: 89.81 kg

DRUGS (10)
  1. RETACRIT [Suspect]
     Active Substance: EPOETIN ALFA-EPBX
     Indication: Anaemia of chronic disease
     Dosage: 10000 IU, WEEKLY (Q WEEK)
     Dates: start: 201907, end: 202001
  2. RETACRIT [Suspect]
     Active Substance: EPOETIN ALFA-EPBX
     Indication: Nephrogenic anaemia
     Dosage: 10000 IU, WEEKLY
     Route: 058
  3. RETACRIT [Suspect]
     Active Substance: EPOETIN ALFA-EPBX
     Dosage: 10000 IU (1 SQ INJ 3X WEEK)
     Route: 058
  4. RETACRIT [Suspect]
     Active Substance: EPOETIN ALFA-EPBX
     Dosage: 10000 IU, 12 INI SQ 3X WEEK
     Route: 058
  5. CELLCEPT [Concomitant]
     Active Substance: MYCOPHENOLATE MOFETIL
     Indication: Renal transplant
     Dosage: 1000 MG, 2X/DAY
     Dates: start: 200205
  6. CELLCEPT [Concomitant]
     Active Substance: MYCOPHENOLATE MOFETIL
     Indication: Prophylaxis against transplant rejection
  7. ENVARSUS XR [Concomitant]
     Active Substance: TACROLIMUS
     Indication: Prophylaxis against transplant rejection
     Dosage: 11 MG, DAILY
  8. PREDNISONE [Concomitant]
     Active Substance: PREDNISONE
     Indication: Steroid therapy
     Dosage: 5 MG, 2X/DAY
     Dates: start: 200205
  9. ELIQUIS [Concomitant]
     Active Substance: APIXABAN
     Indication: Anticoagulant therapy
     Dosage: 5 MG, DAILY
  10. SODIUM BICARBONATE [Concomitant]
     Active Substance: SODIUM BICARBONATE
     Indication: Electrolyte substitution therapy
     Dosage: 650 MG, 2X/DAY (10MGRAM OR 650MG TWICE DAILY)
     Dates: start: 200205

REACTIONS (2)
  - Asthenia [Not Recovered/Not Resolved]
  - Off label use [Unknown]

NARRATIVE: CASE EVENT DATE: 20190701
